FAERS Safety Report 7399855-0 (Version None)
Quarter: 2011Q2

REPORT INFORMATION
  Report Type: 
  Country: None (occurrence: None)
  Receive Date: 20110407
  Receipt Date: 20110323
  Transmission Date: 20111010
  Serious: No
  Sender: FDA-Public Use
  Company Number: US-JNJFOC-20110311860

PATIENT
  Sex: Female
  Weight: 81.65 kg

DRUGS (6)
  1. METOPROLOL [Concomitant]
     Indication: HEART RATE INCREASED
     Route: 048
  2. DURAGESIC [Suspect]
     Indication: BACK PAIN
     Route: 062
  3. LYRICA [Concomitant]
     Indication: FIBROMYALGIA
     Route: 048
  4. CYMBALTA [Concomitant]
     Indication: PAIN
     Route: 048
  5. CRESTOR [Concomitant]
     Indication: BLOOD CHOLESTEROL
     Route: 048
  6. ESTRACE [Concomitant]
     Indication: MENOPAUSE
     Route: 048

REACTIONS (2)
  - WRONG TECHNIQUE IN DRUG USAGE PROCESS [None]
  - PRODUCT ADHESION ISSUE [None]
